APPROVED DRUG PRODUCT: FINGOLIMOD HYDROCHLORIDE
Active Ingredient: FINGOLIMOD HYDROCHLORIDE
Strength: EQ 0.25MG BASE
Dosage Form/Route: CAPSULE;ORAL
Application: A212152 | Product #001
Applicant: TEVA PHARMACEUTICALS USA INC
Approved: Nov 12, 2021 | RLD: No | RS: No | Type: DISCN